APPROVED DRUG PRODUCT: BORTEZOMIB
Active Ingredient: BORTEZOMIB
Strength: 3.5MG/VIAL
Dosage Form/Route: INJECTABLE;INTRAVENOUS, SUBCUTANEOUS
Application: A212204 | Product #001 | TE Code: AP
Applicant: HETERO LABS LTD UNIT VI
Approved: May 3, 2024 | RLD: No | RS: No | Type: RX